FAERS Safety Report 8185861 (Version 8)
Quarter: 2012Q4

REPORT INFORMATION
  Report Type: 
  Country: AR (occurrence: AR)
  Receive Date: 20111018
  Receipt Date: 20120911
  Transmission Date: 20130627
  Serious: Yes (Other)
  Sender: FDA-Public Use
  Company Number: PHHY2011AR91299

PATIENT
  Age: 50 Year
  Sex: Female

DRUGS (10)
  1. TASIGNA [Suspect]
     Indication: CHRONIC MYELOID LEUKAEMIA
     Dosage: 800 mg, daily
     Route: 048
     Dates: start: 201108
  2. TASIGNA [Suspect]
     Dosage: 400 mg, daily
     Route: 048
     Dates: start: 201108
  3. TASIGNA [Suspect]
     Dosage: 600 mg, daily
     Route: 048
     Dates: start: 201108
  4. TASIGNA [Suspect]
     Dosage: 800 mg daily
     Dates: start: 201108
  5. TASIGNA [Suspect]
     Dosage: 800 mg, daily
     Route: 048
     Dates: start: 20120103
  6. TASIGNA [Suspect]
     Dosage: 600 mg, on one day
     Route: 048
  7. TASIGNA [Suspect]
     Dosage: 800 mg, daily
     Route: 048
  8. CETRILER [Concomitant]
  9. DEXAMETHASONE [Concomitant]
     Dates: end: 201109
  10. CORTICOSTEROIDS [Concomitant]
     Dates: start: 201104

REACTIONS (16)
  - Renal disorder [Not Recovered/Not Resolved]
  - Blister [Not Recovered/Not Resolved]
  - Cholelithiasis [Not Recovered/Not Resolved]
  - Agitation [Unknown]
  - Hair texture abnormal [Unknown]
  - Hyperchlorhydria [Not Recovered/Not Resolved]
  - Menorrhagia [Not Recovered/Not Resolved]
  - Anaemia [Not Recovered/Not Resolved]
  - Dermatitis allergic [Recovering/Resolving]
  - Pruritus [Not Recovered/Not Resolved]
  - Fatigue [Not Recovered/Not Resolved]
  - Blood triglycerides increased [Recovering/Resolving]
  - Joint swelling [Not Recovered/Not Resolved]
  - Pyrexia [Not Recovered/Not Resolved]
  - Pain [Not Recovered/Not Resolved]
  - Dyspepsia [Not Recovered/Not Resolved]
